FAERS Safety Report 19626651 (Version 1)
Quarter: 2021Q3

REPORT INFORMATION
  Report Type: Spontaneous
  Country: FR (occurrence: FR)
  Receive Date: 20210729
  Receipt Date: 20210729
  Transmission Date: 20211014
  Serious: Yes (Death, Congenital Anomaly, Other)
  Sender: FDA-Public Use
  Company Number: FR-GLAXOSMITHKLINE-FR2021160689

PATIENT

DRUGS (2)
  1. LAMICTAL [Suspect]
     Active Substance: LAMOTRIGINE
     Indication: EPILEPSY
     Dosage: 1 DF, QD (LONG?TERM TREATMENT IN THE MOTHER)
     Route: 064
  2. KEPPRA [Suspect]
     Active Substance: LEVETIRACETAM
     Indication: EPILEPSY
     Dosage: 1 DF, QD (LONG?TERM TREATMENT IN THE MOTHER)
     Route: 064

REACTIONS (7)
  - Abortion induced [Fatal]
  - Congenital gastric anomaly [Not Recovered/Not Resolved]
  - Generalised oedema [Not Recovered/Not Resolved]
  - Ultrasound antenatal screen [Not Recovered/Not Resolved]
  - Conjoined twins [Not Recovered/Not Resolved]
  - Foetal exposure during pregnancy [Unknown]
  - Abdominal wall anomaly [Not Recovered/Not Resolved]

NARRATIVE: CASE EVENT DATE: 20200921
